FAERS Safety Report 8456613-3 (Version None)
Quarter: 2012Q2

REPORT INFORMATION
  Report Type: 
  Country: None (occurrence: None)
  Receive Date: 20120621
  Receipt Date: 20120615
  Transmission Date: 20120825
  Serious: Yes (Other)
  Sender: FDA-Public Use
  Company Number: US-BAYER-2012-059939

PATIENT
  Age: 59 Year
  Sex: Female

DRUGS (1)
  1. CLIMARA PRO [Suspect]
     Dosage: UNK
     Dates: start: 20120401

REACTIONS (3)
  - MENORRHAGIA [None]
  - VAGINAL HAEMORRHAGE [None]
  - PRODUCT ADHESION ISSUE [None]
